FAERS Safety Report 14034543 (Version 2)
Quarter: 2018Q1

REPORT INFORMATION
  Report Type: Spontaneous
  Country: FR (occurrence: FR)
  Receive Date: 20171003
  Receipt Date: 20180125
  Transmission Date: 20180508
  Serious: Yes (Other)
  Sender: FDA-Public Use
  Company Number: FR-MERCK KGAA-2028628

PATIENT
  Age: 52 Year
  Sex: Female
  Weight: 70 kg

DRUGS (2)
  1. NOVOTHYROX [Suspect]
     Active Substance: LEVOTHYROXINE SODIUM
     Indication: THYROIDECTOMY
     Route: 048
     Dates: start: 20170623, end: 20170831
  2. NOVOTHYROX [Suspect]
     Active Substance: LEVOTHYROXINE SODIUM
     Route: 048
     Dates: start: 20170625

REACTIONS (12)
  - Muscle spasms [Recovering/Resolving]
  - Abdominal distension [Not Recovered/Not Resolved]
  - Gastrooesophageal reflux disease [Recovering/Resolving]
  - Gastrointestinal disorder [Recovering/Resolving]
  - Allergic sinusitis [Recovering/Resolving]
  - Cough [Recovering/Resolving]
  - Blood thyroid stimulating hormone increased [Recovering/Resolving]
  - Vertigo [Recovering/Resolving]
  - Depression [Recovering/Resolving]
  - Headache [Recovering/Resolving]
  - Asthenia [Recovering/Resolving]
  - Eructation [Recovering/Resolving]

NARRATIVE: CASE EVENT DATE: 201707
